FAERS Safety Report 9907606 (Version 1)
Quarter: 2014Q1

REPORT INFORMATION
  Report Type: Report from Study
  Country: DE (occurrence: DE)
  Receive Date: 20140219
  Receipt Date: 20140219
  Transmission Date: 20141002
  Serious: Yes (Hospitalization)
  Sender: FDA-Public Use
  Company Number: DE-AMGEN-DEUCT2014010276

PATIENT
  Age: 34 Year
  Sex: Female

DRUGS (6)
  1. PANITUMUMAB [Suspect]
     Indication: GASTRIC CANCER
     Dosage: 9 MG/KG, UNK
     Route: 065
     Dates: start: 20130722
  2. EPIRUBICIN [Concomitant]
     Indication: GASTRIC CANCER
     Dosage: 50 MG/M2, UNK
     Dates: start: 20130722, end: 20130903
  3. CISPLATIN [Concomitant]
     Indication: GASTRIC CANCER
     Dosage: 60 MG/M2, UNK
     Dates: start: 20130722
  4. CAPECITABINE [Concomitant]
     Indication: GASTRIC CANCER
     Dosage: 475 MG/M2, UNK
     Dates: start: 20130722
  5. DOXYCYCLIN                         /00055701/ [Concomitant]
     Dosage: 100 MG, BID
  6. XELODA [Concomitant]
     Dosage: 500 MG, TID

REACTIONS (3)
  - Fatigue [Recovered/Resolved]
  - Nausea [Recovered/Resolved]
  - Vomiting [Recovered/Resolved]
